FAERS Safety Report 7189850-9 (Version None)
Quarter: 2010Q4

REPORT INFORMATION
  Report Type: 
  Country: None (occurrence: None)
  Receive Date: 20101123
  Receipt Date: 20100913
  Transmission Date: 20110411
  Serious: No
  Sender: FDA-Public Use
  Company Number: 018704

PATIENT

DRUGS (1)
  1. CIMZIA [Suspect]
     Dosage: (MONTHLY INJECTION SUBCUTANEOUS)
     Route: 058

REACTIONS (2)
  - DIARRHOEA [None]
  - FAECAL INCONTINENCE [None]
